FAERS Safety Report 19494483 (Version 1)
Quarter: 2021Q3

REPORT INFORMATION
  Report Type: Spontaneous
  Country: US (occurrence: US)
  Receive Date: 20210705
  Receipt Date: 20210705
  Transmission Date: 20211014
  Serious: No
  Sender: FDA-Public Use
  Company Number: US-INCYTE CORPORATION-2021IN005695

PATIENT

DRUGS (1)
  1. JAKAFI [Suspect]
     Active Substance: RUXOLITINIB
     Indication: POLYCYTHAEMIA VERA
     Dosage: 20MG QAM AND 10MG QPM
     Route: 048
     Dates: start: 20210518

REACTIONS (1)
  - Tongue ulceration [Unknown]

NARRATIVE: CASE EVENT DATE: 2021
